FAERS Safety Report 7484087-8 (Version None)
Quarter: 2011Q2

REPORT INFORMATION
  Report Type: 
  Country: None (occurrence: None)
  Receive Date: 20110509
  Receipt Date: 20110427
  Transmission Date: 20111010
  Serious: Yes (Hospitalization)
  Sender: FDA-Public Use
  Company Number: BR-001660

PATIENT
  Sex: Female
  Weight: 13 kg

DRUGS (7)
  1. CAPTOPRIL [Concomitant]
  2. DIGOXIN [Concomitant]
  3. CARVEDILOL [Concomitant]
  4. ANITIBIOTICS [Concomitant]
  5. NAGLAZYME [Suspect]
     Indication: MUCOPOLYSACCHARIDOSIS VI
     Dosage: (10 MG 1X/WEE INTRAVENOUS DRIP)
     Route: 041
     Dates: start: 20090408
  6. FUROSEMIDE [Concomitant]
  7. HISTAMINE [Concomitant]

REACTIONS (1)
  - CARDIAC FAILURE CONGESTIVE [None]
